FAERS Safety Report 9618665 (Version 1)
Quarter: 2013Q4

REPORT INFORMATION
  Report Type: Spontaneous
  Country: JP (occurrence: JP)
  Receive Date: 20131014
  Receipt Date: 20131014
  Transmission Date: 20140711
  Serious: Yes (Other)
  Sender: FDA-Public Use
  Company Number: JP-OTSUKA-JP-2013-14267

PATIENT
  Sex: Female

DRUGS (2)
  1. PLETAAL [Suspect]
     Dosage: 50 MG MILLIGRAM(S), BID
     Route: 048
     Dates: start: 2010, end: 201106
  2. EPADEL [Concomitant]
     Dosage: UNK
     Route: 048
     Dates: start: 2010, end: 201106

REACTIONS (2)
  - VIth nerve paralysis [Unknown]
  - Diplopia [Unknown]
